FAERS Safety Report 18467090 (Version 2)
Quarter: 2020Q4

REPORT INFORMATION
  Report Type: Spontaneous
  Country: US (occurrence: US)
  Receive Date: 20201105
  Receipt Date: 20201112
  Transmission Date: 20210114
  Serious: No
  Sender: FDA-Public Use
  Company Number: US-TEVA-2020-US-1845734

PATIENT
  Sex: Female

DRUGS (1)
  1. ESTRADIOL TEVA [Suspect]
     Active Substance: ESTRADIOL
     Indication: MENOPAUSAL SYMPTOMS
     Route: 065

REACTIONS (3)
  - Drug ineffective [Unknown]
  - Anger [Unknown]
  - Illness [Unknown]
